FAERS Safety Report 24027170 (Version 1)
Quarter: 2024Q2

REPORT INFORMATION
  Report Type: Spontaneous
  Country: IN (occurrence: IN)
  Receive Date: 20240628
  Receipt Date: 20240628
  Transmission Date: 20240715
  Serious: Yes (Hospitalization, Other)
  Sender: FDA-Public Use
  Company Number: IN-INGENUS PHARMACEUTICALS, LLC-2024INF000028

PATIENT
  Age: 63 Year
  Sex: Male

DRUGS (2)
  1. MELPHALAN HYDROCHLORIDE [Suspect]
     Active Substance: MELPHALAN\MELPHALAN HYDROCHLORIDE
     Indication: Plasma cell myeloma
     Dosage: 140 MILLIGRAM/SQ. METER
     Route: 065
  2. MELPHALAN HYDROCHLORIDE [Suspect]
     Active Substance: MELPHALAN\MELPHALAN HYDROCHLORIDE
     Dosage: 220 MILLIGRAM
     Route: 065

REACTIONS (1)
  - Toxic encephalopathy [Recovering/Resolving]
